FAERS Safety Report 23073376 (Version 1)
Quarter: 2023Q4

REPORT INFORMATION
  Report Type: Spontaneous
  Country: FR (occurrence: FR)
  Receive Date: 20231017
  Receipt Date: 20231017
  Transmission Date: 20240109
  Serious: Yes (Hospitalization)
  Sender: FDA-Public Use
  Company Number: None

PATIENT
  Age: 34 Year
  Sex: Male

DRUGS (12)
  1. BACLOFEN [Interacting]
     Active Substance: BACLOFEN
     Indication: Muscle spasticity
     Dosage: 80 MG, QD
     Route: 048
     Dates: end: 20230914
  2. CIPROFLOXACIN [Interacting]
     Active Substance: CIPROFLOXACIN
     Indication: Prostatitis
     Dosage: 1000 MG, QD
     Route: 048
     Dates: start: 20230902, end: 20230914
  3. DEPAKOTE [Interacting]
     Active Substance: DIVALPROEX SODIUM
     Indication: Bipolar I disorder
     Dosage: 1500 MG, QD
     Route: 048
     Dates: end: 20230914
  4. KETAMINE [Interacting]
     Active Substance: KETAMINE
     Indication: Multiple sclerosis relapse
     Dosage: UNK (NON PRECISEE)
     Route: 042
     Dates: start: 20230902, end: 20230905
  5. ACETAMINOPHEN\BELLADONNA LEAF\CAFFEINE\OPIUM [Interacting]
     Active Substance: ACETAMINOPHEN\BELLADONNA LEAF\CAFFEINE\OPIUM
     Indication: Neuralgia
     Dosage: UNK (NON PRECISEE)
     Route: 048
     Dates: end: 20230914
  6. AMITRIPTYLINE HYDROCHLORIDE [Interacting]
     Active Substance: AMITRIPTYLINE HYDROCHLORIDE
     Indication: Bipolar I disorder
     Dosage: 150 MG, QD
     Route: 048
     Dates: end: 20230914
  7. OXYCONTIN [Interacting]
     Active Substance: OXYCODONE HYDROCHLORIDE
     Indication: Neuralgia
     Dosage: 80 MG, QD
     Route: 048
     Dates: end: 20230914
  8. OXYCODONE HYDROCHLORIDE [Interacting]
     Active Substance: OXYCODONE HYDROCHLORIDE
     Indication: Neuralgia
     Dosage: 30 MG, QD
     Route: 048
     Dates: end: 20230914
  9. RIVOTRIL [Interacting]
     Active Substance: CLONAZEPAM
     Indication: Neuralgia
     Dosage: 8 DRP, QD
     Route: 048
     Dates: end: 20230914
  10. CYAMEMAZINE [Interacting]
     Active Substance: CYAMEMAZINE
     Indication: Bipolar I disorder
     Dosage: 125 MG, QD
     Route: 048
     Dates: end: 20230914
  11. TRIMEPRAZINE [Interacting]
     Active Substance: TRIMEPRAZINE
     Indication: Insomnia
     Dosage: 4 MG, QD
     Route: 048
     Dates: end: 20230914
  12. VESICARE [Interacting]
     Active Substance: SOLIFENACIN SUCCINATE
     Indication: Pollakiuria
     Dosage: 5 MG, QD
     Route: 048
     Dates: end: 20230914

REACTIONS (11)
  - Hypertonia [Recovered/Resolved]
  - Dyspnoea [Recovered/Resolved]
  - Vomiting [Recovered/Resolved]
  - Myoclonus [Recovered/Resolved]
  - Sputum increased [Recovered/Resolved]
  - Psychomotor hyperactivity [Recovered/Resolved]
  - Somnolence [Recovered/Resolved]
  - Confusional state [Recovered/Resolved]
  - Hyperhidrosis [Recovered/Resolved]
  - Tachycardia [Recovered/Resolved]
  - Hypertension [Recovered/Resolved]

NARRATIVE: CASE EVENT DATE: 20230914
